FAERS Safety Report 16640583 (Version 1)
Quarter: 2019Q3

REPORT INFORMATION
  Report Type: Spontaneous
  Country: CA (occurrence: CA)
  Receive Date: 20190729
  Receipt Date: 20190729
  Transmission Date: 20191004
  Serious: Yes (Other)
  Sender: FDA-Public Use
  Company Number: CA-TEVA-2019-CA-1083493

PATIENT
  Sex: Male

DRUGS (10)
  1. MORPHINE SULFATE INJECTION 1MG/ML [Suspect]
     Active Substance: MORPHINE SULFATE
     Indication: TENDONITIS
  2. ATASOL (ACETAMINOPHEN/CAFFENE/CODEINE [Suspect]
     Active Substance: ACETAMINOPHEN\CAFFEINE\CODEINE PHOSPHATE
     Indication: ROTATOR CUFF SYNDROME
  3. ACETAMINOPHEN AND CODEINE [Suspect]
     Active Substance: ACETAMINOPHEN\CODEINE PHOSPHATE
     Indication: ROTATOR CUFF SYNDROME
  4. ACETAMINOPHEN AND CODEINE [Suspect]
     Active Substance: ACETAMINOPHEN\CODEINE PHOSPHATE
     Indication: TENDONITIS
     Route: 065
  5. FENTANYL. [Suspect]
     Active Substance: FENTANYL
     Indication: TENDONITIS
     Route: 065
  6. ATASOL (ACETAMINOPHEN/CAFFENE/CODEINE [Suspect]
     Active Substance: ACETAMINOPHEN\CAFFEINE\CODEINE PHOSPHATE
     Indication: TENDONITIS
     Route: 065
  7. PERCOCET [Suspect]
     Active Substance: ACETAMINOPHEN\OXYCODONE HYDROCHLORIDE
     Indication: ROTATOR CUFF SYNDROME
     Route: 065
  8. FENTANYL. [Suspect]
     Active Substance: FENTANYL
     Indication: ROTATOR CUFF SYNDROME
  9. MORPHINE SULFATE INJECTION 1MG/ML [Suspect]
     Active Substance: MORPHINE SULFATE
     Indication: ROTATOR CUFF SYNDROME
     Route: 065
  10. PERCOCET [Suspect]
     Active Substance: ACETAMINOPHEN\OXYCODONE HYDROCHLORIDE
     Indication: TENDONITIS

REACTIONS (2)
  - Drug diversion [Unknown]
  - Drug dependence [Unknown]
